FAERS Safety Report 5706929-6 (Version None)
Quarter: 2008Q2

REPORT INFORMATION
  Report Type: 
  Country: None (occurrence: None)
  Receive Date: 20080416
  Receipt Date: 20080404
  Transmission Date: 20081010
  Serious: Yes (Other)
  Sender: FDA-Public Use
  Company Number: AT-AMGEN-US274015

PATIENT
  Sex: Female

DRUGS (1)
  1. ENBREL [Suspect]
     Indication: POLYARTHRITIS
     Dosage: 25 MG FREQUENCY UNKNOWN
     Route: 065
     Dates: start: 20010101

REACTIONS (3)
  - COELIAC DISEASE [None]
  - PSORIASIS [None]
  - SARCOIDOSIS [None]
